FAERS Safety Report 21784887 (Version 1)
Quarter: 2022Q4

REPORT INFORMATION
  Report Type: Report from Study
  Country: FR (occurrence: FR)
  Receive Date: 20221227
  Receipt Date: 20221227
  Transmission Date: 20230112
  Serious: Yes (Other)
  Sender: FDA-Public Use
  Company Number: FR-Vifor Pharma-VIT-2022-08545

PATIENT
  Age: 63 Year
  Sex: Male

DRUGS (1)
  1. DIFELIKEFALIN [Suspect]
     Active Substance: DIFELIKEFALIN
     Dosage: 31.25 MICROGRAMS 3 TIMES A WEEK
     Route: 042
     Dates: start: 20221004, end: 20221206

REACTIONS (2)
  - Hallucination, auditory [Not Recovered/Not Resolved]
  - Drug ineffective [Unknown]

NARRATIVE: CASE EVENT DATE: 20221201
